FAERS Safety Report 12573267 (Version 1)
Quarter: 2016Q3

REPORT INFORMATION
  Report Type: Spontaneous
  Country: FR (occurrence: FR)
  Receive Date: 20160720
  Receipt Date: 20160720
  Transmission Date: 20161109
  Serious: Yes (Death, Hospitalization, Other)
  Sender: FDA-Public Use
  Company Number: FR-BRISTOL-MYERS SQUIBB COMPANY-BMS-2016-055849

PATIENT
  Age: 87 Year
  Sex: Male

DRUGS (12)
  1. LASILIX                            /00032601/ [Concomitant]
     Active Substance: FUROSEMIDE
     Indication: PRODUCT USED FOR UNKNOWN INDICATION
     Route: 065
  2. LEVOTHYROX [Concomitant]
     Active Substance: LEVOTHYROXINE
     Indication: PRODUCT USED FOR UNKNOWN INDICATION
     Route: 065
  3. CALCIPARINE [Suspect]
     Active Substance: HEPARIN CALCIUM
     Indication: ATRIAL FIBRILLATION
     Dosage: UNK
     Route: 058
     Dates: start: 2015
  4. KARDEGIC [Concomitant]
     Active Substance: ASPIRIN LYSINE
     Indication: PRODUCT USED FOR UNKNOWN INDICATION
     Route: 065
  5. MIRCERA [Concomitant]
     Active Substance: METHOXY POLYETHYLENE GLYCOL-EPOETIN BETA
     Indication: PRODUCT USED FOR UNKNOWN INDICATION
     Route: 065
  6. HUMALOG [Suspect]
     Active Substance: INSULIN LISPRO
     Indication: DIABETES MELLITUS
     Route: 065
  7. LANTUS [Suspect]
     Active Substance: INSULIN GLARGINE
     Indication: DIABETES MELLITUS
     Route: 065
  8. PYOSTACINE [Concomitant]
     Active Substance: PRISTINAMYCIN
     Indication: PRODUCT USED FOR UNKNOWN INDICATION
     Route: 065
  9. COUMADINE [Suspect]
     Active Substance: WARFARIN SODIUM
     Indication: ATRIAL FIBRILLATION
     Dosage: UNK UNK, QD
     Route: 048
     Dates: start: 2014
  10. TAHOR [Concomitant]
     Active Substance: ATORVASTATIN CALCIUM
     Indication: PRODUCT USED FOR UNKNOWN INDICATION
     Route: 065
  11. CORDARONE [Concomitant]
     Active Substance: AMIODARONE HYDROCHLORIDE
     Indication: PRODUCT USED FOR UNKNOWN INDICATION
     Route: 065
  12. ALLOPURINOL. [Concomitant]
     Active Substance: ALLOPURINOL
     Indication: PRODUCT USED FOR UNKNOWN INDICATION
     Route: 065

REACTIONS (9)
  - Staphylococcal sepsis [Unknown]
  - Craniocerebral injury [Unknown]
  - Hypoglycaemic seizure [Recovered/Resolved]
  - Anaemia [Not Recovered/Not Resolved]
  - Fall [Unknown]
  - Rectal haemorrhage [Unknown]
  - Death [Fatal]
  - Dialysis [Unknown]
  - Bundle branch block [Unknown]

NARRATIVE: CASE EVENT DATE: 20160319
